FAERS Safety Report 4866323-7 (Version None)
Quarter: 2005Q4

REPORT INFORMATION
  Report Type: 
  Country: None (occurrence: None)
  Receive Date: 20051221
  Receipt Date: 20051208
  Transmission Date: 20060501
  Serious: Yes (Life-Threatening, Other)
  Sender: FDA-Public Use
  Company Number: 2005168457

PATIENT
  Age: 58 Year
  Sex: Female

DRUGS (25)
  1. SERTRALINE [Suspect]
     Indication: DEPRESSION
     Dosage: 25 MG
  2. VERAPAMIL HYDROCHLORIDE [Suspect]
     Indication: SUPRAVENTRICULAR TACHYCARDIA
     Dosage: 40 MG, ORAL
     Route: 048
  3. METHYLPHENIDATE HCL [Suspect]
     Indication: DEPRESSION
     Dosage: 5 MG
  4. DOPAMINE HCL [Suspect]
     Indication: ILL-DEFINED DISORDER
     Dosage: 2.5 MCG/KG/MINUTE
  5. TACROLIMUS (TACROLIMUS) [Concomitant]
  6. CYCLOPHOSPHAMIDE [Concomitant]
  7. PREDNISONE [Concomitant]
  8. VALGANCICLOVIR (VALGANCICLOVIR) [Concomitant]
  9. ERYTHROPOIETIN (ERYTHROPOIETIN) [Concomitant]
  10. PRAVASTATIN [Concomitant]
  11. ASPIRIN [Concomitant]
  12. CALCIUM CITRATE (CALCIUM CITRATE) [Concomitant]
  13. PANTOPRAZOLE SODIUM [Concomitant]
  14. DOCUSATE SODIUM (DOCUSATE SODIUM) [Concomitant]
  15. AMPHOTERICIN B [Concomitant]
  16. TRIMETHOPRIM [Concomitant]
  17. FUROSEMIDE [Concomitant]
  18. LEVOFLOXACIN [Concomitant]
  19. ISOPHANE INSULIN (ISOPHANE INSULIN) [Concomitant]
  20. VANCOMYCIN [Concomitant]
  21. NYSTATIN [Concomitant]
  22. HEPARIN [Concomitant]
  23. FERROUS GLUCONATE (FERROUS GLUCONATE) [Concomitant]
  24. MULTIVITAMIN [Concomitant]
  25. SULFAMETHOXAZOLE [Concomitant]

REACTIONS (9)
  - BACTERAEMIA [None]
  - CARDIAC ARREST [None]
  - FLUID OVERLOAD [None]
  - GRAFT DYSFUNCTION [None]
  - HAEMODIALYSIS [None]
  - HEART TRANSPLANT REJECTION [None]
  - HYPOTENSION [None]
  - RENAL FAILURE ACUTE [None]
  - SUPRAVENTRICULAR TACHYCARDIA [None]
